FAERS Safety Report 17688822 (Version 1)
Quarter: 2020Q2

REPORT INFORMATION
  Report Type: Spontaneous
  Country: US (occurrence: US)
  Receive Date: 20200418
  Receipt Date: 20200418
  Transmission Date: 20200714
  Serious: Yes (Hospitalization)
  Sender: FDA-Public Use
  Company Number: None

PATIENT
  Sex: Male
  Weight: 98.8 kg

DRUGS (2)
  1. CARBOPLATIN (241240) [Suspect]
     Active Substance: CARBOPLATIN
     Dates: start: 20190607, end: 20200326
  2. TAXOL [Concomitant]
     Active Substance: PACLITAXEL

REACTIONS (4)
  - Acute respiratory failure [None]
  - Chronic obstructive pulmonary disease [None]
  - Pneumonitis [None]
  - Pulmonary embolism [None]

NARRATIVE: CASE EVENT DATE: 20200308
